FAERS Safety Report 18582885 (Version 2)
Quarter: 2021Q1

REPORT INFORMATION
  Report Type: Report from Study
  Country: US (occurrence: US)
  Receive Date: 20201205
  Receipt Date: 20210104
  Transmission Date: 20210419
  Serious: No
  Sender: FDA-Public Use
  Company Number: NVSC2020US323484

PATIENT
  Sex: Male

DRUGS (2)
  1. FUROSEMIDE. [Suspect]
     Active Substance: FUROSEMIDE
     Indication: WEIGHT INCREASED
     Dosage: UNK
     Route: 065
  2. ENTRESTO [Suspect]
     Active Substance: SACUBITRIL\VALSARTAN
     Indication: PRODUCT USED FOR UNKNOWN INDICATION
     Dosage: UNK
     Route: 048
     Dates: start: 202008

REACTIONS (3)
  - Swelling [Recovering/Resolving]
  - Dyspnoea [Recovering/Resolving]
  - Weight increased [Recovering/Resolving]
